FAERS Safety Report 13497283 (Version 1)
Quarter: 2017Q2

REPORT INFORMATION
  Report Type: Spontaneous
  Country: FR (occurrence: FR)
  Receive Date: 20170428
  Receipt Date: 20170428
  Transmission Date: 20170830
  Serious: Yes (Other)
  Sender: FDA-Public Use
  Company Number: FR-TEVA-759274ROM

PATIENT
  Sex: Male
  Weight: 87 kg

DRUGS (7)
  1. TEVAGRASTIM 48 MUI [Suspect]
     Active Substance: FILGRASTIM
     Indication: LEUKOPENIA
     Route: 058
     Dates: start: 20170310, end: 20170317
  2. ARANESP [Concomitant]
     Active Substance: DARBEPOETIN ALFA
     Indication: REFRACTORY ANAEMIA WITH AN EXCESS OF BLASTS
     Route: 058
     Dates: start: 20170317
  3. LEDERFOLINE [Concomitant]
     Active Substance: LEUCOVORIN CALCIUM
     Indication: PROPHYLAXIS
     Dosage: MONDAY, WEDNESDAY AND FRIDAY
     Route: 048
     Dates: start: 20170330
  4. EXJADE [Concomitant]
     Active Substance: DEFERASIROX
     Indication: HYPERFERRITINAEMIA
     Route: 048
     Dates: start: 20170405
  5. TEVAGRASTIM 48 MUI [Suspect]
     Active Substance: FILGRASTIM
     Dosage: TREATMENT ONGOING
     Route: 058
     Dates: start: 20170410
  6. BACTRIM [Concomitant]
     Active Substance: SULFAMETHOXAZOLE\TRIMETHOPRIM
     Indication: PROPHYLAXIS
     Dosage: MONDAY, WEDNESDAY AND FRIDAY
     Route: 048
     Dates: start: 20170314
  7. TEVAGRASTIM 48 MUI [Suspect]
     Active Substance: FILGRASTIM
     Route: 058
     Dates: start: 20170323, end: 20170406

REACTIONS (4)
  - Off label use [Unknown]
  - Bone pain [Not Recovered/Not Resolved]
  - Blast cell proliferation [Not Recovered/Not Resolved]
  - Erythroblastosis [Recovering/Resolving]
